FAERS Safety Report 23277342 (Version 7)
Quarter: 2024Q4

REPORT INFORMATION
  Report Type: Spontaneous
  Country: US (occurrence: US)
  Receive Date: 20231208
  Receipt Date: 20241220
  Transmission Date: 20250114
  Serious: No
  Sender: PFIZER
  Company Number: US-PFIZER INC-PV202300148169

PATIENT
  Age: 72 Year
  Sex: Male

DRUGS (1)
  1. BOSULIF [Suspect]
     Active Substance: BOSUTINIB MONOHYDRATE
     Indication: Chronic myeloid leukaemia
     Dosage: 300 MG, 1X/DAY ((TAKE 3 TAB TOTAL 300MG) PO QAM, TAKE WITH FOOD)
     Route: 048

REACTIONS (1)
  - Rhinitis allergic [Unknown]
